FAERS Safety Report 8543727-2 (Version None)
Quarter: 2012Q3

REPORT INFORMATION
  Report Type: 
  Country: None (occurrence: None)
  Receive Date: 20120727
  Receipt Date: 20120719
  Transmission Date: 20120928
  Serious: Yes (Other)
  Sender: FDA-Public Use
  Company Number: CA-SANOFI-AVENTIS-2012SA051674

PATIENT
  Age: 71 Year
  Sex: Female

DRUGS (2)
  1. LOVENOX [Suspect]
     Route: 058
  2. PLAVIX [Suspect]
     Route: 048

REACTIONS (1)
  - GOUT [None]
